FAERS Safety Report 10389296 (Version 1)
Quarter: 2014Q3

REPORT INFORMATION
  Report Type: Spontaneous
  Country: FR (occurrence: FR)
  Receive Date: 20140818
  Receipt Date: 20140818
  Transmission Date: 20150326
  Serious: Yes (Hospitalization)
  Sender: FDA-Public Use
  Company Number: FR-AMGEN-FRASP2014062581

PATIENT
  Age: 71 Year
  Sex: Male

DRUGS (3)
  1. DEPAMIDE [Concomitant]
     Active Substance: VALPROMIDE
     Dosage: UNK
  2. ENBREL [Suspect]
     Active Substance: ETANERCEPT
     Dosage: 2 DF, WEEKLY
     Route: 065
     Dates: end: 201407
  3. ENBREL [Suspect]
     Active Substance: ETANERCEPT
     Indication: PSORIASIS
     Dosage: 2 DF, WEEKLY
     Route: 065
     Dates: start: 2005

REACTIONS (1)
  - Ischaemic stroke [Unknown]

NARRATIVE: CASE EVENT DATE: 201407
